FAERS Safety Report 5871423-9 (Version None)
Quarter: 2008Q3

REPORT INFORMATION
  Report Type: 
  Country: None (occurrence: None)
  Receive Date: 20080905
  Receipt Date: 20080121
  Transmission Date: 20090109
  Serious: No
  Sender: FDA-Public Use
  Company Number: A0704374A

PATIENT
  Sex: Female

DRUGS (2)
  1. REQUIP [Suspect]
     Indication: RESTLESS LEGS SYNDROME
     Route: 065
  2. BONTRIL [Concomitant]

REACTIONS (1)
  - DRUG SCREEN POSITIVE [None]
